FAERS Safety Report 10279669 (Version 1)
Quarter: 2014Q3

REPORT INFORMATION
  Report Type: Other
  Country: GB (occurrence: GB)
  Receive Date: 20140707
  Receipt Date: 20140707
  Transmission Date: 20150326
  Serious: Yes (Hospitalization)
  Sender: FDA-Public Use
  Company Number: GB-PERRIGO-14GB006553

PATIENT

DRUGS (4)
  1. RANITIDINE 15MG/ML PL00427/0132 [Suspect]
     Active Substance: RANITIDINE HYDROCHLORIDE
     Indication: REFLUX LARYNGITIS
     Dosage: UNK, UNK
     Route: 065
     Dates: start: 201308
  2. PEDIACEL [Suspect]
     Active Substance: DIPHTHERIA AND TETANUS TOXOIDS AND ACELLULAR PERTUSSIS ADSORBED, INACTIVATED POLIOVIRUS AND HAEMOPHILUS B CONJUGATE (TETANUS TOXOID CONJUGATE) VACCINE
     Indication: IMMUNISATION
     Dosage: UNK, UNK
     Route: 051
     Dates: start: 20130821, end: 20130821
  3. ROTARIX [Suspect]
     Active Substance: HUMAN ROTAVIRUS A TYPE G1P(8) STRAIN RIX4414 LIVE ANTIGEN
     Indication: IMMUNISATION
     Dosage: UNK, UNK
     Route: 065
     Dates: start: 20130821, end: 20130821
  4. MENINGOCOCCAL POLYSACCHARIDE VACCINE C NOS [Suspect]
     Active Substance: MENINGOCOCCAL POLYSACCHARIDE VACCINE C\NEISSERIA MENINGITIDIS GROUP C CAPSULAR POLYSACCHARIDE ANTIGEN
     Indication: IMMUNISATION
     Dosage: UNK, UNK
     Route: 051
     Dates: start: 20130821, end: 20130821

REACTIONS (3)
  - Immune thrombocytopenic purpura [Recovered/Resolved]
  - Papule [Unknown]
  - Contusion [Unknown]

NARRATIVE: CASE EVENT DATE: 20130821
